FAERS Safety Report 4654595-3 (Version None)
Quarter: 2005Q2

REPORT INFORMATION
  Report Type: 
  Country: None (occurrence: None)
  Receive Date: 20050503
  Receipt Date: 20050503
  Transmission Date: 20051028
  Serious: Yes (Hospitalization)
  Sender: FDA-Public Use
  Company Number: None

PATIENT
  Age: 67 Year
  Sex: Female
  Weight: 81.6475 kg

DRUGS (1)
  1. NIACIN [Suspect]
     Dosage: 500MG   QHS    ORAL
     Route: 048
     Dates: start: 20041114, end: 20041116

REACTIONS (3)
  - DRUG INTOLERANCE [None]
  - GENERALISED ERYTHEMA [None]
  - PRURITUS GENERALISED [None]
